FAERS Safety Report 15016301 (Version 1)
Quarter: 2018Q2

REPORT INFORMATION
  Report Type: Spontaneous
  Country: US (occurrence: US)
  Receive Date: 20180531
  Receipt Date: 20180531
  Transmission Date: 20180711
  Serious: Yes (Hospitalization)
  Sender: FDA-Public Use
  Company Number: None

PATIENT
  Age: 83 Year
  Sex: Male
  Weight: 108 kg

DRUGS (8)
  1. FLOMAX 0.4MG [Concomitant]
  2. PIOGLITAZONE 45MG [Concomitant]
     Active Substance: PIOGLITAZONE
  3. ATORVASTATIN 20MG [Concomitant]
     Active Substance: ATORVASTATIN
  4. LISINOPRIL. [Concomitant]
     Active Substance: LISINOPRIL
  5. ATENOLOL 100MG [Concomitant]
     Active Substance: ATENOLOL
  6. FINASTERIDE 1MG [Concomitant]
     Active Substance: FINASTERIDE
  7. VOTRIENT [Suspect]
     Active Substance: PAZOPANIB HYDROCHLORIDE
     Indication: RENAL CANCER
     Route: 048
     Dates: start: 20171130, end: 20180531
  8. ALLOPURINOL 100MG [Concomitant]
     Active Substance: ALLOPURINOL

REACTIONS (2)
  - Diarrhoea [None]
  - Renal failure [None]

NARRATIVE: CASE EVENT DATE: 20180507
